FAERS Safety Report 6113637-9 (Version None)
Quarter: 2009Q1

REPORT INFORMATION
  Report Type: 
  Country: None (occurrence: None)
  Receive Date: 20090312
  Receipt Date: 20090302
  Transmission Date: 20090719
  Serious: Yes (Hospitalization)
  Sender: FDA-Public Use
  Company Number: US-BAXTER-2008BH012355

PATIENT
  Sex: Male

DRUGS (1)
  1. HIGHLY CONCENTRATED POTASSIUM CHLORIDE INJECTION IN PLASTIC CONTAINER [Suspect]
     Indication: DRUG USE FOR UNKNOWN INDICATION
     Route: 042
     Dates: start: 20081105, end: 20081106

REACTIONS (3)
  - MEDICATION ERROR [None]
  - PAIN IN EXTREMITY [None]
  - SKIN IRRITATION [None]
